FAERS Safety Report 23576311 (Version 1)
Quarter: 2024Q1

REPORT INFORMATION
  Report Type: Report from Study
  Country: US (occurrence: US)
  Receive Date: 20240228
  Receipt Date: 20240228
  Transmission Date: 20240409
  Serious: Yes (Death)
  Sender: FDA-Public Use
  Company Number: US-BAYER-2024A030785

PATIENT
  Age: 69 Year
  Sex: Female
  Weight: 38.095 kg

DRUGS (29)
  1. ADEMPAS [Suspect]
     Active Substance: RIOCIGUAT
     Indication: Pulmonary arterial hypertension
     Dosage: UNK
     Dates: start: 20200103
  2. ADEMPAS [Suspect]
     Active Substance: RIOCIGUAT
     Indication: Pulmonary arterial hypertension
     Dosage: 1.5 MG, TID
     Route: 048
  3. NIZATIDINE [Concomitant]
     Active Substance: NIZATIDINE
  4. IBUPROFEN [Concomitant]
     Active Substance: IBUPROFEN
  5. PREVACID [Concomitant]
     Active Substance: LANSOPRAZOLE
  6. NYSTATIN [Concomitant]
     Active Substance: NYSTATIN
  7. PROMETHAZINE [Concomitant]
     Active Substance: PROMETHAZINE HYDROCHLORIDE
  8. HYDROXYZINE HYDROCHLORIDE [Concomitant]
     Active Substance: HYDROXYZINE HYDROCHLORIDE
  9. ZONISAMIDE [Concomitant]
     Active Substance: ZONISAMIDE
  10. DAPSONE [Concomitant]
     Active Substance: DAPSONE
  11. KEPPRA [Concomitant]
     Active Substance: LEVETIRACETAM
  12. LASIX [Concomitant]
     Active Substance: FUROSEMIDE
  13. VALIUM [Concomitant]
     Active Substance: DIAZEPAM
  14. VITAMIN D3 [Concomitant]
     Active Substance: CHOLECALCIFEROL
  15. PROAIR HFA [Concomitant]
     Active Substance: ALBUTEROL SULFATE
  16. VITAMINS [Concomitant]
     Active Substance: VITAMINS
  17. POTASSIUM CHLORIDE [Concomitant]
     Active Substance: POTASSIUM CHLORIDE
  18. DEXTROMETHORPHAN\GUAIFENESIN [Concomitant]
     Active Substance: DEXTROMETHORPHAN\GUAIFENESIN
  19. DIPHENHYDRAMINE HYDROCHLORIDE [Concomitant]
     Active Substance: DIPHENHYDRAMINE HYDROCHLORIDE
  20. VITAMIN D NOS [Concomitant]
     Active Substance: VITAMIN D NOS
  21. RIZATRIPTAN [Concomitant]
     Active Substance: RIZATRIPTAN
  22. DIFLUCAN [Concomitant]
     Active Substance: FLUCONAZOLE
  23. OXYGEN [Concomitant]
     Active Substance: OXYGEN
  24. ASPIRIN [Concomitant]
     Active Substance: ASPIRIN
  25. MOXIFLOXACIN [Concomitant]
     Active Substance: MOXIFLOXACIN
  26. IRON [Concomitant]
     Active Substance: IRON
  27. BUTALBITAL, ACETAMINOPHEN, AND CAFFEINE [Concomitant]
     Active Substance: ACETAMINOPHEN\BUTALBITAL\CAFFEINE
  28. PFIZER-BIONTECH COVID-19 VACCINE [Concomitant]
     Active Substance: TOZINAMERAN
  29. STIOLTO RESPIMAT [Concomitant]
     Active Substance: OLODATEROL HYDROCHLORIDE\TIOTROPIUM BROMIDE MONOHYDRATE

REACTIONS (1)
  - Death [Fatal]

NARRATIVE: CASE EVENT DATE: 20240214
